FAERS Safety Report 19462204 (Version 2)
Quarter: 2021Q3

REPORT INFORMATION
  Report Type: Spontaneous
  Country: US (occurrence: US)
  Receive Date: 20210625
  Receipt Date: 20210927
  Transmission Date: 20211014
  Serious: No
  Sender: FDA-Public Use
  Company Number: US-ASTELLAS-2021US016945

PATIENT
  Age: 8 Decade
  Sex: Male

DRUGS (3)
  1. PADCEV [Suspect]
     Active Substance: ENFORTUMAB VEDOTIN-EJFV
     Dosage: 0.75 MG/KG, CYCLIC
     Route: 065
     Dates: start: 202105, end: 20210723
  2. PADCEV [Suspect]
     Active Substance: ENFORTUMAB VEDOTIN-EJFV
     Indication: PRODUCT USED FOR UNKNOWN INDICATION
     Route: 065
     Dates: start: 20200325
  3. PADCEV [Suspect]
     Active Substance: ENFORTUMAB VEDOTIN-EJFV
     Route: 065

REACTIONS (7)
  - Scratch [Unknown]
  - Gait disturbance [Unknown]
  - Condition aggravated [Not Recovered/Not Resolved]
  - Hypoaesthesia [Unknown]
  - Initial insomnia [Unknown]
  - Rash pruritic [Recovered/Resolved]
  - Peripheral sensory neuropathy [Not Recovered/Not Resolved]
